FAERS Safety Report 9731114 (Version 3)
Quarter: 2014Q1

REPORT INFORMATION
  Report Type: Spontaneous
  Country: US (occurrence: US)
  Receive Date: 20131203
  Receipt Date: 20140102
  Transmission Date: 20141002
  Serious: Yes (Other)
  Sender: FDA-Public Use
  Company Number: US-BAYER-2013-141750

PATIENT
  Age: 31 Year
  Sex: Female
  Weight: 65.76 kg

DRUGS (1)
  1. MIRENA [Suspect]
     Indication: CONTRACEPTION
     Dosage: 20 MCG/24HR, CONT
     Route: 015
     Dates: start: 20100712, end: 20131002

REACTIONS (8)
  - Pelvic pain [None]
  - Device physical property issue [None]
  - Genital haemorrhage [None]
  - Abdominal pain [None]
  - Libido decreased [None]
  - Vaginal discharge [None]
  - Device dislocation [None]
  - Device difficult to use [None]
